FAERS Safety Report 19198475 (Version 2)
Quarter: 2021Q2

REPORT INFORMATION
  Report Type: Spontaneous
  Country: DE (occurrence: DE)
  Receive Date: 20210430
  Receipt Date: 20210506
  Transmission Date: 20210717
  Serious: Yes (Death, Hospitalization, Other)
  Sender: FDA-Public Use
  Company Number: DE-009507513-2104DEU007850

PATIENT
  Age: 62 Year
  Sex: Male
  Weight: 94 kg

DRUGS (5)
  1. AXITINIB [Suspect]
     Active Substance: AXITINIB
     Indication: METASTASIS
     Dosage: 2X 5MG DAILY
     Route: 048
     Dates: start: 20210326
  2. AXITINIB [Suspect]
     Active Substance: AXITINIB
     Indication: RENAL CELL CARCINOMA RECURRENT
  3. PREDNISOLON [Concomitant]
     Active Substance: PREDNISOLONE
  4. PEMBROLIZUMAB. [Suspect]
     Active Substance: PEMBROLIZUMAB
     Indication: METASTASIS
     Dosage: 200 MG IV ONCE
     Route: 042
     Dates: start: 20210326
  5. PEMBROLIZUMAB. [Suspect]
     Active Substance: PEMBROLIZUMAB
     Indication: RENAL CELL CARCINOMA RECURRENT

REACTIONS (3)
  - Diarrhoea [Unknown]
  - General physical health deterioration [Unknown]
  - Pancreatitis [Fatal]

NARRATIVE: CASE EVENT DATE: 20210409
